FAERS Safety Report 9769284 (Version 7)
Quarter: 2015Q2

REPORT INFORMATION
  Report Type: Spontaneous
  Country: US (occurrence: US)
  Receive Date: 20131218
  Receipt Date: 20150427
  Transmission Date: 20150821
  Serious: Yes (Hospitalization, Other)
  Sender: FDA-Public Use
  Company Number: US-MERCK-1312USA005244

PATIENT
  Sex: Female

DRUGS (5)
  1. ALENDRONATE SODIUM. [Suspect]
     Active Substance: ALENDRONATE SODIUM
     Indication: OSTEOPOROSIS
     Dosage: 70 MG, QW
     Route: 048
     Dates: start: 200810, end: 200909
  2. ALENDRONATE SODIUM. [Suspect]
     Active Substance: ALENDRONATE SODIUM
     Indication: OSTEOPOROSIS
     Dosage: 70 MG, QW
     Route: 048
     Dates: start: 201001
  3. ALENDRONATE SODIUM. [Suspect]
     Active Substance: ALENDRONATE SODIUM
     Indication: OSTEOPOROSIS
     Dosage: 70 MG, QW
     Route: 048
     Dates: start: 200909, end: 200912
  4. FOSAMAX [Suspect]
     Active Substance: ALENDRONATE SODIUM
     Indication: OSTEOPOROSIS
     Dosage: 70 MG, QW
     Route: 048
     Dates: start: 2000, end: 200802
  5. ALENDRONATE SODIUM. [Suspect]
     Active Substance: ALENDRONATE SODIUM
     Indication: OSTEOPOROSIS
     Dosage: 70 MG, QW
     Route: 048
     Dates: start: 200802, end: 200810

REACTIONS (22)
  - Type 2 diabetes mellitus [Unknown]
  - Arthralgia [Unknown]
  - Cancer surgery [Unknown]
  - Blood cholesterol increased [Unknown]
  - Intramedullary rod insertion [Unknown]
  - Skin cancer [Unknown]
  - Drug hypersensitivity [Unknown]
  - Femur fracture [Unknown]
  - Vitamin D deficiency [Unknown]
  - Anaemia [Unknown]
  - Hypertension [Unknown]
  - Limb operation [Unknown]
  - Intramedullary rod insertion [Recovering/Resolving]
  - Iodine allergy [Unknown]
  - Fall [Unknown]
  - Bacteriuria [Unknown]
  - Arthralgia [Not Recovered/Not Resolved]
  - Femur fracture [Unknown]
  - Femur fracture [Recovering/Resolving]
  - Acute kidney injury [Unknown]
  - Coronary artery disease [Unknown]
  - Malnutrition [Unknown]

NARRATIVE: CASE EVENT DATE: 200409
